FAERS Safety Report 17379639 (Version 1)
Quarter: 2020Q1

REPORT INFORMATION
  Report Type: Spontaneous
  Country: DE (occurrence: DE)
  Receive Date: 20200206
  Receipt Date: 20200206
  Transmission Date: 20200409
  Serious: Yes (Hospitalization, Other)
  Sender: FDA-Public Use
  Company Number: DE-MYLANLABS-V-DE-2007-0474

PATIENT
  Age: 23 Year
  Sex: Female

DRUGS (5)
  1. QUETIAPINE. [Interacting]
     Active Substance: QUETIAPINE
     Indication: IRRITABILITY
     Dosage: 25 MILLIGRAM, QD
     Route: 048
  2. QUETIAPINE. [Interacting]
     Active Substance: QUETIAPINE
     Indication: HYPERSENSITIVITY
  3. QUETIAPINE. [Interacting]
     Active Substance: QUETIAPINE
     Indication: DISTURBANCE IN ATTENTION
     Dosage: 25 MG DAILY
     Route: 048
  4. AMISULPRIDE [Concomitant]
     Active Substance: AMISULPRIDE
     Indication: IRRITABILITY
     Dosage: 100 MILLIGRAM, QD, 100 MG MILLIGRAM(S) EVERY DAY
  5. FLUOXETINE [Suspect]
     Active Substance: FLUOXETINE HYDROCHLORIDE
     Indication: DEPRESSION
     Dosage: 20 MILLIGRAM, QD (20 MG MILLIGRAM(S) EVERY DAY)
     Route: 048

REACTIONS (7)
  - Blood creatinine increased [Recovered/Resolved]
  - Myalgia [Recovered/Resolved]
  - Alanine aminotransferase increased [Recovered/Resolved]
  - Drug interaction [Recovered/Resolved]
  - Galactorrhoea [Unknown]
  - Aspartate aminotransferase increased [Recovered/Resolved]
  - Rhabdomyolysis [Recovered/Resolved]
